FAERS Safety Report 25725165 (Version 2)
Quarter: 2025Q3

REPORT INFORMATION
  Report Type: Spontaneous
  Country: CO (occurrence: CO)
  Receive Date: 20250826
  Receipt Date: 20250901
  Transmission Date: 20251021
  Serious: Yes (Other)
  Sender: REGENERON
  Company Number: CO-BAYER-2025A099864

PATIENT
  Sex: Female

DRUGS (2)
  1. EYLEA [Suspect]
     Active Substance: AFLIBERCEPT
     Indication: Macular degeneration
     Dosage: 40 MG, Q1MON, TREATED IN RIGHT EYE, SOLUTION FOR INJECTION IN PRE-FILLED SYRINGE, 40 MG/ML
     Route: 031
  2. EYLEA [Suspect]
     Active Substance: AFLIBERCEPT
     Indication: Diabetic retinopathy
     Dates: start: 20250221, end: 20250221

REACTIONS (3)
  - Lens dislocation [Unknown]
  - Influenza [Unknown]
  - Intraocular lens implant [Unknown]

NARRATIVE: CASE EVENT DATE: 20250101
